FAERS Safety Report 12446264 (Version 2)
Quarter: 2016Q2

REPORT INFORMATION
  Report Type: Spontaneous
  Country: US (occurrence: US)
  Receive Date: 20160608
  Receipt Date: 20160615
  Transmission Date: 20160815
  Serious: Yes (Other)
  Sender: FDA-Public Use
  Company Number: US-HORIZON-RAV-0102-2016

PATIENT
  Age: 28 Year
  Sex: Female

DRUGS (2)
  1. RAVICTI [Suspect]
     Active Substance: GLYCEROL PHENYLBUTYRATE
     Indication: ORNITHINE TRANSCARBAMOYLASE DEFICIENCY
     Dosage: 4.6 ML 3 TIMES DAILY
     Dates: start: 201310
  2. PROTEIN [Concomitant]
     Active Substance: PROTEIN
     Dosage: 34 G

REACTIONS (2)
  - Intentional product misuse [Unknown]
  - Kidney infection [Recovered/Resolved]
